FAERS Safety Report 8503828-1 (Version None)
Quarter: 2012Q3

REPORT INFORMATION
  Report Type: 
  Country: None (occurrence: None)
  Receive Date: 20120711
  Receipt Date: 20120702
  Transmission Date: 20120928
  Serious: Yes (Hospitalization)
  Sender: FDA-Public Use
  Company Number: US-JNJFOC-20120604993

PATIENT
  Sex: Female
  Weight: 49.9 kg

DRUGS (10)
  1. REMICADE [Suspect]
     Indication: COLITIS ULCERATIVE
     Route: 042
     Dates: start: 20110420
  2. REMICADE [Suspect]
     Route: 042
     Dates: start: 20110501
  3. MULTIPLE VITAMIN [Concomitant]
     Route: 065
  4. FISH OIL [Concomitant]
     Route: 065
  5. ACYCLOVIR [Concomitant]
     Indication: COLITIS ULCERATIVE
     Route: 048
  6. PREDNISONE [Suspect]
     Indication: COLITIS ULCERATIVE
     Route: 048
     Dates: start: 20120601
  7. ALL OTHER THERAPEUTIC PRODUCTS [Concomitant]
     Route: 065
  8. LORAZEPAM [Concomitant]
     Indication: ANXIETY
     Route: 065
  9. ACYCLOVIR [Concomitant]
     Indication: HERPES VIRUS INFECTION
     Route: 048
  10. ATENOLOL [Concomitant]
     Indication: HEART RATE INCREASED
     Route: 065

REACTIONS (5)
  - DISTURBANCE IN ATTENTION [None]
  - FREQUENT BOWEL MOVEMENTS [None]
  - COLITIS [None]
  - DYSPLASIA [None]
  - CLOSTRIDIAL INFECTION [None]
